FAERS Safety Report 5614191-8 (Version None)
Quarter: 2008Q1

REPORT INFORMATION
  Report Type: 
  Country: None (occurrence: None)
  Receive Date: 20080205
  Receipt Date: 20080201
  Transmission Date: 20080703
  Serious: Yes (Hospitalization)
  Sender: FDA-Public Use
  Company Number: B0506557A

PATIENT
  Age: 40 Year
  Sex: Male

DRUGS (6)
  1. AUGMENTIN '125' [Suspect]
     Indication: INFECTION PROPHYLAXIS
     Route: 048
     Dates: start: 20071010, end: 20071028
  2. TAVANIC [Suspect]
     Indication: INFECTION PROPHYLAXIS
     Dosage: 500MG PER DAY
     Route: 048
     Dates: start: 20071010, end: 20071028
  3. EPIVIR [Suspect]
     Indication: HIV INFECTION
     Dosage: 150MG PER DAY
     Route: 048
     Dates: start: 20030101, end: 20071111
  4. TRAMADOL HCL [Suspect]
     Indication: URETEROSCOPY
     Dosage: 50MG THREE TIMES PER DAY
     Route: 048
     Dates: start: 20071010, end: 20071028
  5. VIREAD [Suspect]
     Indication: HIV INFECTION
     Dosage: 24MG PER DAY
     Route: 048
     Dates: start: 20030101, end: 20071111
  6. KALETRA [Suspect]
     Indication: HIV INFECTION
     Route: 048
     Dates: start: 20020101, end: 20071111

REACTIONS (6)
  - ABDOMINAL PAIN UPPER [None]
  - ACHOLIA [None]
  - CHOLURIA [None]
  - HEPATITIS CHOLESTATIC [None]
  - JAUNDICE [None]
  - PRURITUS [None]
